FAERS Safety Report 11343002 (Version 1)
Quarter: 2015Q3

REPORT INFORMATION
  Report Type: Spontaneous
  Country: US (occurrence: US)
  Receive Date: 20150805
  Receipt Date: 20150805
  Transmission Date: 20151125
  Serious: Yes (Hospitalization)
  Sender: FDA-Public Use
  Company Number: US-ENDO PHARMACEUTICALS INC.-2015-002157

PATIENT
  Age: 72 Year
  Sex: Female

DRUGS (12)
  1. HYDROXYCHLOROQUINE [Concomitant]
     Active Substance: HYDROXYCHLOROQUINE
     Indication: PRODUCT USED FOR UNKNOWN INDICATION
     Route: 065
     Dates: start: 20140922, end: 20150616
  2. PREDNISONE TABLETS [Suspect]
     Active Substance: PREDNISONE
     Dosage: 2.5 MG IN THE MORNINGS?2.5 MG IN THE EVENINGS
     Route: 065
  3. PREDNISONE TABLETS [Suspect]
     Active Substance: PREDNISONE
     Indication: ARTHRALGIA
     Route: 065
  4. PREDNISONE TABLETS [Suspect]
     Active Substance: PREDNISONE
     Route: 065
  5. PREDNISONE TABLETS [Suspect]
     Active Substance: PREDNISONE
     Route: 065
  6. FOLIC ACID. [Concomitant]
     Active Substance: FOLIC ACID
     Indication: PRODUCT USED FOR UNKNOWN INDICATION
     Route: 065
     Dates: start: 20140922
  7. METHOTREXATE [Suspect]
     Active Substance: METHOTREXATE
     Indication: ARTHRITIS
     Route: 065
  8. METHOTREXATE [Suspect]
     Active Substance: METHOTREXATE
     Route: 065
     Dates: start: 20150325
  9. PREDNISONE TABLETS [Suspect]
     Active Substance: PREDNISONE
     Dosage: 5 MG IN THE MORNINGS?2.5 MG IN THE EVENINGS
     Route: 065
  10. BABY ASPIRIN [Concomitant]
     Active Substance: ASPIRIN
     Indication: PRODUCT USED FOR UNKNOWN INDICATION
     Dosage: 81MG
     Route: 065
  11. PREDNISONE TABLETS [Suspect]
     Active Substance: PREDNISONE
     Route: 065
  12. XELJANZ [Concomitant]
     Active Substance: TOFACITINIB CITRATE
     Indication: PRODUCT USED FOR UNKNOWN INDICATION
     Route: 065
     Dates: start: 20150601

REACTIONS (10)
  - Fungal oesophagitis [Recovered/Resolved]
  - Arthralgia [Not Recovered/Not Resolved]
  - Blood glucose increased [Recovering/Resolving]
  - Cholelithiasis [Recovered/Resolved]
  - Oesophagitis ulcerative [Unknown]
  - Gastritis [Recovered/Resolved]
  - Weight decreased [Recovering/Resolving]
  - Dysgeusia [Unknown]
  - Decreased appetite [Recovered/Resolved]
  - Drug ineffective [Recovered/Resolved]

NARRATIVE: CASE EVENT DATE: 20140904
